FAERS Safety Report 5387505-4 (Version None)
Quarter: 2007Q3

REPORT INFORMATION
  Report Type: 
  Country: None (occurrence: None)
  Receive Date: 20070716
  Receipt Date: 20070704
  Transmission Date: 20080115
  Serious: Yes (Hospitalization, Other)
  Sender: FDA-Public Use
  Company Number: GR-AMGEN-UK232636

PATIENT
  Sex: Female
  Weight: 51 kg

DRUGS (8)
  1. KEPIVANCE [Suspect]
     Indication: MUCOSAL INFLAMMATION
     Route: 042
     Dates: start: 20070418, end: 20070502
  2. GRANULOKINE [Concomitant]
     Route: 065
  3. HEPARIN [Concomitant]
     Route: 065
  4. ABELCET [Concomitant]
  5. CIPROXIN [Concomitant]
     Route: 065
  6. ZOVIRAX [Concomitant]
     Route: 065
  7. ZANTAC [Concomitant]
     Route: 065
  8. ANTIHISTAMINES [Concomitant]
     Route: 065

REACTIONS (1)
  - GUILLAIN-BARRE SYNDROME [None]
